FAERS Safety Report 4759016-8 (Version None)
Quarter: 2005Q3

REPORT INFORMATION
  Report Type: 
  Country: None (occurrence: None)
  Receive Date: 20050901
  Receipt Date: 20050729
  Transmission Date: 20060218
  Serious: Yes (Hospitalization)
  Sender: FDA-Public Use
  Company Number: PHBS2005JP11161

PATIENT
  Age: 72 Year
  Sex: Male
  Weight: 73 kg

DRUGS (8)
  1. DIOVAN [Suspect]
     Indication: HYPERTENSION
     Dosage: 80 MG/DAY
     Route: 048
     Dates: start: 20050511, end: 20050531
  2. DIOVAN [Suspect]
     Dosage: 80 MG/DAY
     Route: 048
     Dates: start: 20050702, end: 20050706
  3. SYMMETREL [Concomitant]
     Indication: HEMIPLEGIA
     Dosage: 150 MG/DAY
     Route: 048
     Dates: start: 20050702, end: 20050704
  4. GASTER [Concomitant]
     Indication: GASTRITIS
     Dosage: 20 MG/DAY
     Route: 048
     Dates: start: 20050702, end: 20050704
  5. CONTOMIN [Concomitant]
     Indication: ANXIETY
     Dosage: 25 MG/DAY
     Route: 048
     Dates: start: 20050702, end: 20050704
  6. CALBLOCK [Suspect]
     Indication: HYPERTENSION
     Dosage: 16 MG/DAY
     Route: 048
     Dates: start: 20050702, end: 20050706
  7. MAGNESIUM OXIDE [Concomitant]
     Indication: CONSTIPATION
     Dosage: 2 G/DAY
     Route: 048
     Dates: start: 20050702, end: 20050706
  8. NITRODERM [Concomitant]
     Indication: ACUTE MYOCARDIAL INFARCTION
     Dosage: 1 PATCH/DAY
     Dates: start: 20050702

REACTIONS (9)
  - ALANINE AMINOTRANSFERASE INCREASED [None]
  - ASPARTATE AMINOTRANSFERASE INCREASED [None]
  - BLOOD ALKALINE PHOSPHATASE INCREASED [None]
  - BLOOD BILIRUBIN ABNORMAL [None]
  - GAMMA-GLUTAMYLTRANSFERASE INCREASED [None]
  - HEPATIC FUNCTION ABNORMAL [None]
  - JAUNDICE [None]
  - LIVER DISORDER [None]
  - LIVER FUNCTION TEST ABNORMAL [None]
